FAERS Safety Report 8319127 (Version 5)
Quarter: 2013Q1

REPORT INFORMATION
  Report Type: Report from Study
  Country: DE (occurrence: DE)
  Receive Date: 20120103
  Receipt Date: 20130212
  Transmission Date: 20140127
  Serious: Yes (Other)
  Sender: FDA-Public Use
  Company Number: DE-CELGENEUS-062-C5013-11122614

PATIENT
  Age: 73 Year
  Sex: Male
  Weight: 79.5 kg

DRUGS (12)
  1. CC-5013 [Suspect]
     Indication: PLASMA CELL MYELOMA
     Dosage: 25 MILLIGRAM
     Route: 048
     Dates: start: 20090127
  2. CC-5013 [Suspect]
     Dosage: 25 MILLIGRAM
     Route: 048
     Dates: start: 20111206
  3. DEXAMETHASONE [Suspect]
     Indication: PLASMA CELL MYELOMA
     Dosage: 40 MILLIGRAM
     Route: 065
     Dates: start: 20090127
  4. ACETYLSALICYLIC ACID [Concomitant]
     Indication: THROMBOSIS PROPHYLAXIS
     Dosage: 100 MILLIGRAM
     Route: 065
     Dates: start: 20090127
  5. ACICLOVIR [Concomitant]
     Indication: HERPES SIMPLEX
     Route: 065
     Dates: start: 20110524
  6. ACICLOVIR [Concomitant]
     Route: 065
     Dates: start: 20110524
  7. BISOPROLOL [Concomitant]
     Indication: HYPERTENSION
     Dosage: 2.5 MILLIGRAM
     Route: 065
     Dates: start: 20101021
  8. DOXAZOSIN [Concomitant]
     Indication: HYPERTONIA
     Dosage: 2 MILLIGRAM
     Route: 065
     Dates: start: 2008
  9. NEBILET [Concomitant]
     Indication: HYPERTONIA
     Dosage: 2.5 MILLIGRAM
     Route: 065
     Dates: start: 2008
  10. PANTOZOL [Concomitant]
     Indication: PROPHYLAXIS
     Dosage: 40 MILLIGRAM
     Route: 065
     Dates: start: 2008, end: 20120104
  11. TRANSTEC [Concomitant]
     Indication: PAIN
     Route: 065
     Dates: start: 200811
  12. ZOMETA [Concomitant]
     Indication: OSTEOLYSIS
     Route: 065
     Dates: start: 20090303

REACTIONS (1)
  - Squamous cell carcinoma of skin [Recovered/Resolved]
